FAERS Safety Report 21880959 (Version 1)
Quarter: 2023Q1

REPORT INFORMATION
  Report Type: Report from Study
  Country: IT (occurrence: IT)
  Receive Date: 20230118
  Receipt Date: 20230118
  Transmission Date: 20230418
  Serious: Yes (Death)
  Sender: FDA-Public Use
  Company Number: IT-002147023-NVSC2022IT252731

PATIENT

DRUGS (1)
  1. RUXOLITINIB [Suspect]
     Active Substance: RUXOLITINIB
     Indication: Product used for unknown indication
     Dosage: UNK, QD, (EVERY DAY)
     Route: 065
     Dates: start: 20210813

REACTIONS (2)
  - Bladder prolapse [Unknown]
  - Death [Fatal]

NARRATIVE: CASE EVENT DATE: 20221031
